FAERS Safety Report 17415894 (Version 1)
Quarter: 2020Q1

REPORT INFORMATION
  Report Type: Spontaneous
  Country: US (occurrence: US)
  Receive Date: 20200130
  Receipt Date: 20200130
  Transmission Date: 20200409
  Serious: No
  Sender: FDA-Public Use
  Company Number: None

PATIENT
  Age: 78 Year
  Sex: Female

DRUGS (1)
  1. XARELTO [Suspect]
     Active Substance: RIVAROXABAN
     Indication: HYPERGAMMAGLOBULINAEMIA
     Route: 048
     Dates: start: 20180327

REACTIONS (2)
  - Hypergammaglobulinaemia [None]
  - Myocardial infarction [None]

NARRATIVE: CASE EVENT DATE: 201912
